FAERS Safety Report 5473386-7 (Version None)
Quarter: 2007Q3

REPORT INFORMATION
  Report Type: 
  Country: None (occurrence: None)
  Receive Date: 20070919
  Receipt Date: 20070829
  Transmission Date: 20080115
  Serious: Yes (Hospitalization)
  Sender: FDA-Public Use
  Company Number: 6181 / 6037496

PATIENT
  Age: 20 Year
  Sex: Female

DRUGS (5)
  1. CIPROFLOXACIN [Suspect]
     Indication: BRONCHOPNEUMONIA
     Dosage: 1500 MG (750 MG)
  2. TOBRAMYCIN [Suspect]
     Dosage: 600 MG (300 MG, 2 IN 1D)
  3. PULMOZYME [Concomitant]
  4. PANCREATIC, ENZYMES (PANCRELIPASE) [Concomitant]
  5. CONTRACEPTIVE ORAL [Concomitant]

REACTIONS (16)
  - ANION GAP INCREASED [None]
  - AZOTAEMIA [None]
  - BIOPSY KIDNEY ABNORMAL [None]
  - BLOOD BICARBONATE DECREASED [None]
  - COUGH [None]
  - DECREASED APPETITE [None]
  - DRUG TOXICITY [None]
  - FATIGUE [None]
  - FLANK PAIN [None]
  - FORCED EXPIRATORY VOLUME DECREASED [None]
  - HYPERPHOSPHATAEMIA [None]
  - PSEUDOMONAS INFECTION [None]
  - PYREXIA [None]
  - RENAL TUBULAR ATROPHY [None]
  - RENAL TUBULAR DISORDER [None]
  - WEIGHT DECREASED [None]
